FAERS Safety Report 13972141 (Version 2)
Quarter: 2018Q3

REPORT INFORMATION
  Report Type: Spontaneous
  Country: US (occurrence: US)
  Receive Date: 20170914
  Receipt Date: 20180913
  Transmission Date: 20181010
  Serious: No
  Sender: FDA-Public Use
  Company Number: US-ASTELLAS-2016US041662

PATIENT
  Age: 58 Year
  Sex: Male

DRUGS (1)
  1. XTANDI [Suspect]
     Active Substance: ENZALUTAMIDE
     Indication: PROSTATE CANCER
     Dosage: 160 MG (FOUR CAPSULES), ONCE DAILY
     Route: 048
     Dates: start: 20160719

REACTIONS (12)
  - Weight increased [Unknown]
  - Tinnitus [Unknown]
  - Weight fluctuation [Unknown]
  - Hyperhidrosis [Unknown]
  - Insomnia [Unknown]
  - Insomnia [Unknown]
  - Mood swings [Unknown]
  - Weight increased [Unknown]
  - Hyperhidrosis [Unknown]
  - Hyperhidrosis [Unknown]
  - Weight decreased [Unknown]
  - Weight decreased [Unknown]

NARRATIVE: CASE EVENT DATE: 20170720
